FAERS Safety Report 9025145 (Version 1)
Quarter: 2013Q1

REPORT INFORMATION
  Report Type: Spontaneous
  Country: US (occurrence: US)
  Receive Date: 20130122
  Receipt Date: 20130122
  Transmission Date: 20140127
  Serious: Yes (Hospitalization)
  Sender: FDA-Public Use
  Company Number: US-FRI-1000041173

PATIENT
  Age: 83 Year
  Sex: Male

DRUGS (15)
  1. NAMENDA [Suspect]
     Indication: MEMORY IMPAIRMENT
     Dosage: 5 MG
     Route: 048
     Dates: start: 201211, end: 2012
  2. NAMENDA [Suspect]
     Dosage: 10 MG
     Route: 048
     Dates: start: 2012, end: 2012
  3. NAMENDA [Suspect]
     Dosage: 5 MG QAM AND 10 MG QHS
     Route: 048
     Dates: start: 2012, end: 2012
  4. NAMENDA [Suspect]
     Dosage: 20 MG
     Route: 048
     Dates: start: 2012
  5. ARICEPT [Concomitant]
  6. PILOCARPINE [Concomitant]
  7. LOSARTAN [Concomitant]
  8. METOPROLOL [Concomitant]
  9. DOXAZOSIN [Concomitant]
  10. NEXIUM [Concomitant]
     Indication: GASTROOESOPHAGEAL REFLUX DISEASE
  11. ATORVASTATIN [Concomitant]
     Indication: BLOOD CHOLESTEROL INCREASED
  12. WARFARIN [Concomitant]
     Indication: ATRIAL FIBRILLATION
  13. SYMBICORT [Concomitant]
     Indication: CHRONIC OBSTRUCTIVE PULMONARY DISEASE
  14. COMBIVENT [Concomitant]
     Indication: CHRONIC OBSTRUCTIVE PULMONARY DISEASE
  15. FINASTERIDE [Concomitant]
     Indication: PROSTATOMEGALY

REACTIONS (3)
  - Mania [Recovering/Resolving]
  - Confusional state [Recovering/Resolving]
  - Off label use [Not Recovered/Not Resolved]
